FAERS Safety Report 7954231-4 (Version None)
Quarter: 2011Q4

REPORT INFORMATION
  Report Type: 
  Country: None (occurrence: None)
  Receive Date: 20111202
  Receipt Date: 20111122
  Transmission Date: 20120403
  Serious: Yes (Other)
  Sender: FDA-Public Use
  Company Number: US-ROCHE-1015517

PATIENT
  Sex: Female

DRUGS (3)
  1. BONIVA [Suspect]
     Indication: OSTEOPOROSIS
     Dates: start: 20030101, end: 20100101
  2. ACTONEL [Suspect]
     Indication: OSTEOPOROSIS
     Dates: start: 20030101, end: 20100101
  3. FOSAMAX [Suspect]
     Indication: OSTEOPOROSIS
     Dates: start: 20030101, end: 20100101

REACTIONS (3)
  - LOW TURNOVER OSTEOPATHY [None]
  - FEMUR FRACTURE [None]
  - EMOTIONAL DISTRESS [None]
